FAERS Safety Report 14025991 (Version 3)
Quarter: 2017Q4

REPORT INFORMATION
  Report Type: Spontaneous
  Country: US (occurrence: US)
  Receive Date: 20170929
  Receipt Date: 20171219
  Transmission Date: 20180321
  Serious: Yes (Disabling, Other)
  Sender: FDA-Public Use
  Company Number: US-DEPOMED, INC.-US-2017DEP001860

PATIENT

DRUGS (6)
  1. EZETIMIBE. [Concomitant]
     Active Substance: EZETIMIBE
     Indication: BLOOD CHOLESTEROL INCREASED
     Dosage: 10 MG, UNK
     Route: 048
  2. VITAMIN D                          /00107901/ [Concomitant]
     Active Substance: ERGOCALCIFEROL
     Indication: URTICARIA
     Dosage: 1.25 G, UNK
     Route: 048
  3. OXYCODONE [Concomitant]
     Active Substance: OXYCODONE
     Indication: PAIN
     Dosage: 7.5 G, UNK
     Route: 048
  4. ANASTROZOLE. [Concomitant]
     Active Substance: ANASTROZOLE
     Indication: BREAST CANCER
     Dosage: 1 MG, UNK
     Route: 048
     Dates: start: 2012, end: 201711
  5. GRALISE [Suspect]
     Active Substance: GABAPENTIN
     Indication: NERVE INJURY
     Dosage: 300 MG, QD, TITRATED UP TO 1800 MG, QD
     Route: 048
     Dates: start: 20170811, end: 20170827
  6. LEVOTHYROXINE. [Concomitant]
     Active Substance: LEVOTHYROXINE
     Indication: HYPOTHYROIDISM
     Dosage: 75 ?G, 3 TIMES A WEEK
     Route: 048

REACTIONS (15)
  - Foot fracture [Recovering/Resolving]
  - Oedema peripheral [Not Recovered/Not Resolved]
  - Drug dose titration not performed [Unknown]
  - Fall [Not Recovered/Not Resolved]
  - Gait inability [Recovered/Resolved]
  - Ankle fracture [Not Recovered/Not Resolved]
  - Fatigue [Recovered/Resolved]
  - Disorientation [Recovered/Resolved]
  - Sensory loss [Recovered/Resolved]
  - Impaired driving ability [Not Recovered/Not Resolved]
  - Arthralgia [Recovered/Resolved]
  - Back pain [Not Recovered/Not Resolved]
  - Dizziness [Recovered/Resolved]
  - Feeling abnormal [Recovered/Resolved]
  - Product use in unapproved indication [Recovered/Resolved]

NARRATIVE: CASE EVENT DATE: 20170811
